FAERS Safety Report 7281590-0 (Version None)
Quarter: 2011Q1

REPORT INFORMATION
  Report Type: 
  Country: None (occurrence: None)
  Receive Date: 20110208
  Receipt Date: 20110128
  Transmission Date: 20110831
  Serious: Yes (Hospitalization, Other)
  Sender: FDA-Public Use
  Company Number: PHHY2010BR35868

PATIENT
  Sex: Female
  Weight: 53.5 kg

DRUGS (1)
  1. ACLASTA [Suspect]
     Indication: OSTEOPOROSIS
     Dosage: 5 MG ONCE A YEAR
     Route: 042
     Dates: start: 20090312

REACTIONS (11)
  - NEUTROPHIL TOXIC GRANULATION PRESENT [None]
  - HEART RATE INCREASED [None]
  - PAIN [None]
  - DYSPNOEA [None]
  - ABDOMINAL DISCOMFORT [None]
  - ARTHRALGIA [None]
  - PYREXIA [None]
  - CHILLS [None]
  - HEADACHE [None]
  - FATIGUE [None]
  - TREMOR [None]
